FAERS Safety Report 5743918-X (Version None)
Quarter: 2008Q2

REPORT INFORMATION
  Report Type: 
  Country: None (occurrence: None)
  Receive Date: 20080520
  Receipt Date: 20080509
  Transmission Date: 20081010
  Serious: Yes (Death)
  Sender: FDA-Public Use
  Company Number: JP-JNJFOC-20080400143

PATIENT
  Sex: Male
  Weight: 60 kg

DRUGS (10)
  1. RISPERDAL [Suspect]
     Indication: SCHIZOPHRENIA SIMPLE
     Route: 048
  2. DISTIGMINE BROMIDE [Concomitant]
     Route: 048
  3. FLUNITRAZEPAM [Concomitant]
     Route: 048
  4. FLUNITRAZEPAM [Concomitant]
     Route: 048
  5. QUAZEPAM [Concomitant]
     Route: 048
  6. QUAZEPAM [Concomitant]
     Route: 048
  7. BROMAZEPAM [Concomitant]
     Route: 048
  8. BROMAZEPAM [Concomitant]
     Route: 048
  9. TRIMEBUTINE MALEATE [Concomitant]
     Indication: PROPHYLAXIS
     Route: 048
  10. SENNA EXTRACT [Concomitant]
     Route: 048

REACTIONS (4)
  - ASPHYXIA [None]
  - ELECTROCARDIOGRAM ABNORMAL [None]
  - HYPONATRAEMIA [None]
  - WATER INTOXICATION [None]
